FAERS Safety Report 8957262 (Version 2)
Quarter: 2013Q1

REPORT INFORMATION
  Report Type: Spontaneous
  Country: DE (occurrence: DE)
  Receive Date: 20121211
  Receipt Date: 20130104
  Transmission Date: 20140127
  Serious: Yes (Other)
  Sender: FDA-Public Use
  Company Number: DE-ROCHE-1147381

PATIENT
  Age: 47 Year
  Sex: Female
  Weight: 80 kg

DRUGS (6)
  1. AVASTIN [Suspect]
     Indication: HEPATIC CANCER
     Dosage: STOPPED
     Route: 042
     Dates: start: 20090903
  2. AVASTIN [Suspect]
     Dosage: RESTARTED
     Route: 042
     Dates: end: 201210
  3. OXALIPLATIN [Concomitant]
     Indication: HEPATIC CANCER
     Route: 065
     Dates: start: 20090903, end: 20111017
  4. GEMCITABINE [Concomitant]
     Indication: HEPATIC CANCER
     Route: 042
     Dates: start: 20090903, end: 20120109
  5. GRANISETRON [Concomitant]
     Indication: PROPHYLAXIS OF NAUSEA AND VOMITING
     Route: 042
     Dates: start: 20090903, end: 20120109
  6. SOLU-DECORTIN [Concomitant]
     Indication: PROPHYLAXIS OF NAUSEA AND VOMITING
     Route: 042
     Dates: start: 20090903, end: 20120109

REACTIONS (9)
  - Proteinuria [Recovering/Resolving]
  - Renal failure [Recovering/Resolving]
  - Hypertensive crisis [Unknown]
  - Hypertension [Recovering/Resolving]
  - Neutropenia [Unknown]
  - Incisional hernia [Unknown]
  - Ascites [Unknown]
  - Malignant neoplasm progression [Unknown]
  - General physical health deterioration [Unknown]
